FAERS Safety Report 7627550-9 (Version None)
Quarter: 2011Q3

REPORT INFORMATION
  Report Type: 
  Country: None (occurrence: None)
  Receive Date: 20110721
  Receipt Date: 20110711
  Transmission Date: 20111222
  Serious: Yes (Hospitalization)
  Sender: FDA-Public Use
  Company Number: RU-TYCO HEALTHCARE/MALLINCKRODT-T201101358

PATIENT
  Age: 70 Year
  Sex: Male
  Weight: 96 kg

DRUGS (6)
  1. OPTIRAY 300 [Suspect]
     Indication: ANGIOGRAM
     Dosage: 100 ML, SINGLE
     Route: 013
     Dates: start: 20110607, end: 20110607
  2. DIGOXIN [Concomitant]
     Dosage: UNK
     Route: 048
     Dates: start: 20110602, end: 20110607
  3. ISOSORBIDE DINITRATE [Concomitant]
     Dosage: UNK
     Route: 048
     Dates: start: 20110603
  4. BISOPROLOL [Concomitant]
     Dosage: UNK
     Route: 048
     Dates: start: 20110602
  5. TENOX                              /00972401/ [Concomitant]
     Dosage: UNK
     Route: 048
     Dates: start: 20110603
  6. VEROSPIRON [Concomitant]
     Dosage: UNK
     Route: 048
     Dates: start: 20110603

REACTIONS (2)
  - ELECTROCARDIOGRAM ST SEGMENT ELEVATION [None]
  - ARTERIOSPASM CORONARY [None]
